FAERS Safety Report 8258124-7 (Version None)
Quarter: 2012Q2

REPORT INFORMATION
  Report Type: 
  Country: None (occurrence: None)
  Receive Date: 20120404
  Receipt Date: 20120330
  Transmission Date: 20120825
  Serious: No
  Sender: FDA-Public Use
  Company Number: US-PFIZER INC-2012082888

PATIENT
  Sex: Male

DRUGS (2)
  1. LEVEMIR [Concomitant]
     Dosage: 34U AM+25 PM
  2. TIKOSYN [Suspect]
     Indication: ATRIAL FIBRILLATION
     Dosage: 375 UG, 2X/DAY
     Route: 048

REACTIONS (2)
  - PALPITATIONS [None]
  - DYSPNOEA EXERTIONAL [None]
